FAERS Safety Report 8071291 (Version 4)
Quarter: 2015Q1

REPORT INFORMATION
  Report Type: Spontaneous
  Country: US (occurrence: US)
  Receive Date: 20110805
  Receipt Date: 20150205
  Transmission Date: 20150721
  Serious: Yes (Other)
  Sender: FDA-Public Use
  Company Number: US-ROCHE-772914

PATIENT
  Sex: Male
  Weight: 80.7 kg

DRUGS (2)
  1. ACCUTANE [Suspect]
     Active Substance: ISOTRETINOIN
     Indication: ACNE
     Route: 048
  2. ACCUTANE [Suspect]
     Active Substance: ISOTRETINOIN
     Route: 048
     Dates: start: 20020611, end: 200209

REACTIONS (8)
  - Colitis ulcerative [Unknown]
  - Depression [Unknown]
  - Inflammatory bowel disease [Unknown]
  - Emotional distress [Unknown]
  - Suicidal ideation [Unknown]
  - Epistaxis [Unknown]
  - Acne [Unknown]
  - Dry skin [Unknown]

NARRATIVE: CASE EVENT DATE: 2006
